FAERS Safety Report 4589816-9 (Version None)
Quarter: 2005Q1

REPORT INFORMATION
  Report Type: 
  Country: None (occurrence: None)
  Receive Date: 20050125
  Receipt Date: 20040831
  Transmission Date: 20050727
  Serious: No
  Sender: FDA-Public Use
  Company Number: USA040874567

PATIENT
  Age: 50 Year
  Sex: Female
  Weight: 39 kg

DRUGS (3)
  1. FORTEO [Suspect]
     Indication: OSTEOPOROSIS
     Dosage: 20 UG DAY
     Dates: start: 20040729
  2. CALCIUM GLUCONATE [Concomitant]
  3. VITAMIN 12 FOR INJECTION (CYANOCOALAMIN) [Concomitant]

REACTIONS (13)
  - ABNORMAL FAECES [None]
  - CONSTIPATION [None]
  - DEPRESSION [None]
  - DYSPEPSIA [None]
  - EMOTIONAL DISORDER [None]
  - FEELING ABNORMAL [None]
  - FOOD CRAVING [None]
  - INJECTION SITE ERYTHEMA [None]
  - INJECTION SITE HAEMORRHAGE [None]
  - INJECTION SITE PAIN [None]
  - NAUSEA [None]
  - STOMACH DISCOMFORT [None]
  - VOMITING [None]
